FAERS Safety Report 13964435 (Version 1)
Quarter: 2017Q3

REPORT INFORMATION
  Report Type: Spontaneous
  Country: US (occurrence: US)
  Receive Date: 20170913
  Receipt Date: 20170913
  Transmission Date: 20171128
  Serious: Yes (Disabling)
  Sender: FDA-Public Use
  Company Number: None

PATIENT
  Age: 53 Year
  Sex: Female
  Weight: 90 kg

DRUGS (2)
  1. ZOLOFT [Concomitant]
     Active Substance: SERTRALINE HYDROCHLORIDE
  2. LEVAQUIN [Suspect]
     Active Substance: LEVOFLOXACIN
     Indication: SKIN INFECTION
     Dosage: ?          QUANTITY:30 TABLET(S); DAILY ORAL?
     Route: 048
     Dates: start: 20160211, end: 20160313

REACTIONS (2)
  - Tendon rupture [None]
  - Arthralgia [None]

NARRATIVE: CASE EVENT DATE: 20160810
